FAERS Safety Report 8623169-1 (Version None)
Quarter: 2012Q3

REPORT INFORMATION
  Report Type: 
  Country: None (occurrence: None)
  Receive Date: 20120827
  Receipt Date: 20120717
  Transmission Date: 20120928
  Serious: Yes (Hospitalization)
  Sender: FDA-Public Use
  Company Number: MX-ELI_LILLY_AND_COMPANY-MX201203006949

PATIENT
  Sex: Female
  Weight: 73.923 kg

DRUGS (8)
  1. TELMISARTAN [Concomitant]
     Indication: HYPERTENSION
     Dosage: 40 MG, BID
     Dates: start: 20000601
  2. VERAPAMILO [Concomitant]
     Indication: HYPERTENSION
     Dosage: 80 MG, BID
     Dates: start: 19890601
  3. CLORTALIDONA [Concomitant]
     Indication: HYPERTENSION
     Dosage: 25 MG, UNKNOWN
     Dates: start: 19890601
  4. ASPIRIN [Concomitant]
     Indication: CARDIOVASCULAR EVENT PROPHYLAXIS
     Dosage: 100 MG, UNKNOWN
     Dates: start: 19890601
  5. OMEPRAZOLE [Concomitant]
     Dosage: 20 MG, UNKNOWN
     Dates: start: 20110516
  6. HUMALOG [Suspect]
     Indication: TYPE 2 DIABETES MELLITUS
     Dosage: 49 U, UNKNOWN
     Route: 058
     Dates: start: 20110715, end: 20111227
  7. METFORMIN [Concomitant]
     Dosage: 850 MG, BID
     Route: 048
     Dates: start: 20110516
  8. DULAGLUTIDE [Concomitant]
     Indication: TYPE 2 DIABETES MELLITUS
     Dosage: UNK, WEEKLY (1/W)
     Route: 058
     Dates: start: 20110715

REACTIONS (3)
  - HYPOGLYCAEMIA [None]
  - CHOREA [None]
  - TRANSIENT ISCHAEMIC ATTACK [None]
